FAERS Safety Report 7509838-5 (Version None)
Quarter: 2011Q2

REPORT INFORMATION
  Report Type: 
  Country: None (occurrence: None)
  Receive Date: 20110527
  Receipt Date: 20110518
  Transmission Date: 20111010
  Serious: Yes (Hospitalization)
  Sender: FDA-Public Use
  Company Number: A0929336A

PATIENT
  Sex: Female

DRUGS (3)
  1. INHALER [Concomitant]
  2. CONCURRENT MEDICATIONS [Concomitant]
  3. ADVAIR DISKUS 100/50 [Suspect]
     Route: 055
     Dates: start: 19960101

REACTIONS (1)
  - ADVERSE EVENT [None]
